FAERS Safety Report 15553683 (Version 2)
Quarter: 2018Q4

REPORT INFORMATION
  Report Type: Spontaneous
  Country: US (occurrence: US)
  Receive Date: 20181026
  Receipt Date: 20181112
  Transmission Date: 20190205
  Serious: No
  Sender: FDA-Public Use
  Company Number: US-ALEMBIC PHARMACUETICALS LIMITED-2018SCAL000791

PATIENT
  Sex: Male

DRUGS (2)
  1. ROPINIROLE HYDROCHLORIDE. [Suspect]
     Active Substance: ROPINIROLE HYDROCHLORIDE
     Indication: RESTLESS LEGS SYNDROME
     Dosage: 1 TABLET IN MORNING, HALF AT PM AND HALF TABLET BEFORE SLEEP
     Route: 048
  2. HYDROCODONE [Concomitant]
     Active Substance: HYDROCODONE
     Indication: MIGRAINE
     Dosage: UNK
     Route: 048

REACTIONS (2)
  - Gambling disorder [Not Recovered/Not Resolved]
  - Wrong technique in product usage process [Unknown]
